FAERS Safety Report 12782057 (Version 1)
Quarter: 2016Q3

REPORT INFORMATION
  Report Type: Report from Study
  Country: US (occurrence: US)
  Receive Date: 20160927
  Receipt Date: 20160927
  Transmission Date: 20161109
  Serious: Yes (Hospitalization, Other)
  Sender: FDA-Public Use
  Company Number: US-BRISTOL-MYERS SQUIBB COMPANY-BMS-2016-076382

PATIENT
  Age: 66 Year
  Sex: Female

DRUGS (2)
  1. MORPHINE [Concomitant]
     Active Substance: MORPHINE
     Indication: PAIN
     Dosage: 30 MG, Q8H
     Route: 065
  2. ABATACEPT [Suspect]
     Active Substance: ABATACEPT
     Indication: ARTHRITIS
     Dosage: 125 MG/ML, QWK
     Route: 058
     Dates: start: 2016

REACTIONS (4)
  - Oedema peripheral [Unknown]
  - Product use issue [Unknown]
  - Chondrocalcinosis pyrophosphate [Unknown]
  - Knee operation [Unknown]

NARRATIVE: CASE EVENT DATE: 20160824
